FAERS Safety Report 7035154-4 (Version None)
Quarter: 2010Q4

REPORT INFORMATION
  Report Type: 
  Country: None (occurrence: None)
  Receive Date: 20101008
  Receipt Date: 20101004
  Transmission Date: 20110411
  Serious: Yes (Hospitalization, Other)
  Sender: FDA-Public Use
  Company Number: PL-BAYER-201033642GPV

PATIENT
  Age: 64 Year
  Sex: Female
  Weight: 100 kg

DRUGS (6)
  1. SORAFENIB [Suspect]
     Indication: NEOPLASM
     Dosage: TOTAL DAILY DOSE: 400 MG  UNIT DOSE: 200 MG
     Route: 048
     Dates: start: 20100320, end: 20100624
  2. BISOCARD [Concomitant]
     Indication: HYPERTENSION
     Route: 048
     Dates: start: 20080101
  3. AMLOPI [Concomitant]
     Indication: HYPERTENSION
     Route: 048
     Dates: start: 20080101
  4. PIRAMIL [Concomitant]
     Route: 048
     Dates: start: 20080101
  5. THEOVENT [Concomitant]
     Indication: PROPHYLAXIS
     Route: 048
     Dates: start: 20080101
  6. ACARD [Concomitant]
     Indication: CARDIOVASCULAR EVENT PROPHYLAXIS
     Route: 048
     Dates: start: 20080101

REACTIONS (2)
  - NEOPLASM [None]
  - RIGHT VENTRICULAR DYSFUNCTION [None]
